FAERS Safety Report 25728782 (Version 1)
Quarter: 2025Q3

REPORT INFORMATION
  Report Type: Spontaneous
  Country: US (occurrence: US)
  Receive Date: 20250826
  Receipt Date: 20250826
  Transmission Date: 20251021
  Serious: No
  Sender: ASCENDIS PHARMA
  Company Number: US-ASCENDIS PHARMA-2025US010320

PATIENT

DRUGS (1)
  1. YORVIPATH [Suspect]
     Active Substance: PALOPEGTERIPARATIDE
     Indication: Product used for unknown indication
     Route: 065
     Dates: start: 202506

REACTIONS (1)
  - Hepatic enzyme increased [Unknown]

NARRATIVE: CASE EVENT DATE: 20250630
